FAERS Safety Report 13942383 (Version 1)
Quarter: 2017Q3

REPORT INFORMATION
  Report Type: Spontaneous
  Country: US (occurrence: US)
  Receive Date: 20170906
  Receipt Date: 20170906
  Transmission Date: 20171127
  Serious: Yes (Life-Threatening, Hospitalization)
  Sender: FDA-Public Use
  Company Number: US-MYLANLABS-2017M1055037

PATIENT
  Age: 68 Year
  Sex: Female

DRUGS (1)
  1. SOTALOL. [Suspect]
     Active Substance: SOTALOL
     Indication: ATRIAL FIBRILLATION
     Route: 065

REACTIONS (2)
  - Pulmonary alveolar haemorrhage [Recovering/Resolving]
  - Interstitial lung disease [Recovering/Resolving]
